FAERS Safety Report 23698712 (Version 1)
Quarter: 2024Q2

REPORT INFORMATION
  Report Type: Spontaneous
  Country: US (occurrence: US)
  Receive Date: 20240402
  Receipt Date: 20240402
  Transmission Date: 20240715
  Serious: No
  Sender: FDA-Public Use
  Company Number: US-SA-SAC20240401000363

PATIENT
  Sex: Male

DRUGS (2)
  1. ELOCTATE [Suspect]
     Active Substance: EFMOROCTOCOG ALFA
     Indication: Factor IX deficiency
     Dosage: 4680 U4680 U EVERY TUESDAY AND FRIDAY AND ONCE DAILY ON DEMAND FOR BLEEDING STRENGTH: ELOCTATE INJ,
     Route: 042
     Dates: start: 201512
  2. ELOCTATE [Suspect]
     Active Substance: EFMOROCTOCOG ALFA
     Indication: Factor IX deficiency
     Dosage: 4680 U4680 U EVERY TUESDAY AND FRIDAY AND ONCE DAILY ON DEMAND FOR BLEEDING STRENGTH: ELOCTATE INJ,
     Route: 042
     Dates: start: 201512

REACTIONS (1)
  - Haemorrhage [Unknown]
